FAERS Safety Report 19521170 (Version 2)
Quarter: 2021Q3

REPORT INFORMATION
  Report Type: Spontaneous
  Country: JP (occurrence: JP)
  Receive Date: 20210712
  Receipt Date: 20210730
  Transmission Date: 20211014
  Serious: Yes (Death, Life-Threatening, Other)
  Sender: FDA-Public Use
  Company Number: JP-OTSUKA-2021_024089

PATIENT
  Age: 51 Year
  Sex: Male

DRUGS (11)
  1. VALACICLOVIR HYDROCHLORIDE [Suspect]
     Active Substance: VALACYCLOVIR HYDROCHLORIDE
     Indication: PROPHYLAXIS
     Dosage: UNK
     Route: 065
  2. GANCICLOVIR. [Concomitant]
     Active Substance: GANCICLOVIR
     Indication: CYTOMEGALOVIRUS VIRAEMIA
     Dosage: UNK
     Route: 065
  3. FOSCARNET SODIUM. [Concomitant]
     Active Substance: FOSCARNET SODIUM
     Indication: ENCEPHALITIS CYTOMEGALOVIRUS
     Dosage: UNK
     Route: 065
  4. GANCICLOVIR. [Concomitant]
     Active Substance: GANCICLOVIR
     Indication: ENCEPHALITIS CYTOMEGALOVIRUS
  5. BUSULFEX [Suspect]
     Active Substance: BUSULFAN
     Indication: CORD BLOOD TRANSPLANT THERAPY
     Dosage: 3.2 MG/KG, QID
     Route: 042
  6. MELPHALAN. [Suspect]
     Active Substance: MELPHALAN
     Indication: CORD BLOOD TRANSPLANT THERAPY
     Dosage: 40 MG/M2, QD
     Route: 042
  7. MYCOPHENOLATE MOFETIL. [Concomitant]
     Active Substance: MYCOPHENOLATE MOFETIL
     Indication: PRODUCT USED FOR UNKNOWN INDICATION
     Dosage: 1500 MG, DAILY DOSE
     Route: 065
  8. METHYLPREDNISOLONE. [Concomitant]
     Active Substance: METHYLPREDNISOLONE
     Indication: ENGRAFTMENT SYNDROME
     Dosage: 20 MG, DAILY DOSE
     Route: 065
  9. FLUDARABINE PHOSPHATE. [Suspect]
     Active Substance: FLUDARABINE PHOSPHATE
     Indication: CORD BLOOD TRANSPLANT THERAPY
     Dosage: 30 MG/M2, QD
     Route: 042
  10. TACROLIMUS MONOHYDRATE [Suspect]
     Active Substance: TACROLIMUS
     Indication: PROPHYLAXIS AGAINST GRAFT VERSUS HOST DISEASE
     Dosage: UNK
     Route: 065
  11. ANTITHYMOCYTE IMMUNOGLOBULIN (RABBIT) [Suspect]
     Active Substance: LAPINE T-LYMPHOCYTE IMMUNE GLOBULIN
     Indication: PROPHYLAXIS AGAINST GRAFT VERSUS HOST DISEASE
     Dosage: 1 MG/KG
     Route: 042

REACTIONS (8)
  - Acute hepatic failure [Unknown]
  - Multiple organ dysfunction syndrome [Fatal]
  - Encephalitis cytomegalovirus [Unknown]
  - Incorrect product administration duration [Unknown]
  - Adenoviral hepatitis [Unknown]
  - Haemorrhagic cyst [Unknown]
  - Cytomegalovirus viraemia [Unknown]
  - Thrombotic microangiopathy [Unknown]
